FAERS Safety Report 8514243-9 (Version None)
Quarter: 2012Q3

REPORT INFORMATION
  Report Type: 
  Country: None (occurrence: None)
  Receive Date: 20120717
  Receipt Date: 20120710
  Transmission Date: 20120928
  Serious: Yes (Other)
  Sender: FDA-Public Use
  Company Number: NL-SANOFI-AVENTIS-2012SA049249

PATIENT
  Age: 54 Year
  Sex: Male

DRUGS (2)
  1. GLYBURIDE [Concomitant]
     Route: 048
     Dates: start: 20120501
  2. RILUTEK [Suspect]
     Indication: AMYOTROPHIC LATERAL SCLEROSIS
     Route: 048
     Dates: start: 20120501, end: 20120601

REACTIONS (1)
  - RHABDOMYOLYSIS [None]
